FAERS Safety Report 17289283 (Version 5)
Quarter: 2020Q2

REPORT INFORMATION
  Report Type: Spontaneous
  Country: US (occurrence: US)
  Receive Date: 20200120
  Receipt Date: 20200506
  Transmission Date: 20200713
  Serious: Yes (Hospitalization, Other)
  Sender: FDA-Public Use
  Company Number: US-AMNEAL PHARMACEUTICALS-2020-AMRX-00053

PATIENT
  Age: 75 Year
  Sex: Male
  Weight: 63.5 kg

DRUGS (10)
  1. RYTARY [Suspect]
     Active Substance: CARBIDOPA\LEVODOPA
     Indication: PARKINSON^S DISEASE
     Dosage: 2 CAPS IN MORNING, 1 CAPS AT AFTERNOON, 1 CAPS AT NIGHT
     Route: 048
     Dates: start: 2018
  2. RYTARY [Interacting]
     Active Substance: CARBIDOPA\LEVODOPA
     Dosage: 1 CAPSULES, 4 /DAY
     Route: 048
  3. AVODART [Concomitant]
     Active Substance: DUTASTERIDE
     Indication: PROSTATE CANCER
     Dosage: UNK , QD
     Route: 065
  4. SINEMET [Interacting]
     Active Substance: CARBIDOPA\LEVODOPA
     Indication: PARKINSON^S DISEASE
     Dosage: UNK
     Route: 065
  5. MELATONIN [Concomitant]
     Active Substance: MELATONIN
     Indication: PRODUCT USED FOR UNKNOWN INDICATION
     Dosage: 25 MG ONCE AT NIGHT
     Route: 065
  6. RYTARY [Interacting]
     Active Substance: CARBIDOPA\LEVODOPA
     Dosage: 2 CAPS IN MORNING, THEN 1 CAPSULE FOR 2ND, 3RD AND 4TH DOSE
     Route: 048
     Dates: start: 20191220
  7. FLOMAX [Concomitant]
     Active Substance: TAMSULOSIN HYDROCHLORIDE
     Indication: PROSTATE CANCER
     Dosage: UNK, QD
     Route: 065
  8. METFORMIN [Concomitant]
     Active Substance: METFORMIN HYDROCHLORIDE
     Indication: PRODUCT USED FOR UNKNOWN INDICATION
     Dosage: 1 DOSAGE FORM, EVERY 2 OR 3 DAYS
     Route: 065
  9. VITAMIN D NOS [Concomitant]
     Active Substance: VITAMIN D NOS
     Indication: PRODUCT USED FOR UNKNOWN INDICATION
     Dosage: UNK, QD
     Route: 065
  10. RYTARY [Interacting]
     Active Substance: CARBIDOPA\LEVODOPA
     Dosage: 1 CAPS, 4/DAY
     Route: 048
     Dates: start: 20200108

REACTIONS (15)
  - Feeling abnormal [Recovered/Resolved]
  - Delusion [Recovered/Resolved]
  - Dysphagia [Unknown]
  - Confusional state [Unknown]
  - Pneumonia aspiration [Recovered/Resolved]
  - Irritability [Recovered/Resolved]
  - Decreased appetite [Recovered/Resolved]
  - Adverse event [Unknown]
  - Infection [Unknown]
  - Behaviour disorder [Recovered/Resolved]
  - Aspiration [Recovered/Resolved]
  - Tremor [Unknown]
  - Potentiating drug interaction [Unknown]
  - Cholecystitis infective [Recovered/Resolved]
  - Gait inability [Unknown]

NARRATIVE: CASE EVENT DATE: 2019
